FAERS Safety Report 13954509 (Version 1)
Quarter: 2017Q3

REPORT INFORMATION
  Report Type: Spontaneous
  Country: US (occurrence: US)
  Receive Date: 20170911
  Receipt Date: 20170911
  Transmission Date: 20171128
  Serious: Yes (Other)
  Sender: FDA-Public Use
  Company Number: US-ELI_LILLY_AND_COMPANY-US201708011653

PATIENT
  Sex: Male

DRUGS (5)
  1. HYDROCHLOROTHIAZIDE. [Interacting]
     Active Substance: HYDROCHLOROTHIAZIDE
     Indication: SWELLING
     Dosage: 10 MG, DAILY
     Route: 065
  2. ASPIRIN                            /00002701/ [Concomitant]
     Active Substance: ASPIRIN
     Indication: PRODUCT USED FOR UNKNOWN INDICATION
     Dosage: UNK, UNKNOWN
     Route: 065
  3. LISINOPRIL. [Concomitant]
     Active Substance: LISINOPRIL
     Indication: PRODUCT USED FOR UNKNOWN INDICATION
     Dosage: 10 MG, UNKNOWN
     Route: 065
  4. CIALIS [Suspect]
     Active Substance: TADALAFIL
     Indication: BENIGN PROSTATIC HYPERPLASIA
     Dosage: 5 MG, DAILY
     Route: 048
     Dates: start: 2015
  5. LEVOTHYROXINE. [Concomitant]
     Active Substance: LEVOTHYROXINE
     Indication: PRODUCT USED FOR UNKNOWN INDICATION
     Dosage: UNK, UNKNOWN
     Route: 065

REACTIONS (6)
  - Central nervous system lesion [Not Recovered/Not Resolved]
  - Drug effect decreased [Not Recovered/Not Resolved]
  - Cerebral thrombosis [Not Recovered/Not Resolved]
  - Peripheral swelling [Unknown]
  - Drug interaction [Unknown]
  - Transient ischaemic attack [Unknown]

NARRATIVE: CASE EVENT DATE: 201707
